FAERS Safety Report 9540002 (Version 1)
Quarter: 2013Q2

REPORT INFORMATION
  Report Type: Spontaneous
  Country: US (occurrence: None)
  Receive Date: 20130506
  Receipt Date: 20130506
  Transmission Date: 20140414
  Serious: Yes (Other)
  Sender: FDA-Public Use
  Company Number: 3004763499-2012-00003

PATIENT
  Age: 43 Year
  Sex: Female
  Weight: 58.97 kg

DRUGS (1)
  1. HIBICLENS [Suspect]
     Dosage: 10-15 CC
     Dates: start: 20120430

REACTIONS (3)
  - Musculoskeletal disorder [None]
  - Synovitis [None]
  - Surgery [None]
